FAERS Safety Report 8189196-6 (Version None)
Quarter: 2012Q1

REPORT INFORMATION
  Report Type: 
  Country: None (occurrence: None)
  Receive Date: 20120306
  Receipt Date: 20120306
  Transmission Date: 20120608
  Serious: Yes (Hospitalization)
  Sender: FDA-Public Use
  Company Number: None

PATIENT
  Age: 73 Year
  Sex: Female
  Weight: 49.7 kg

DRUGS (1)
  1. RAD001 EVEROLIMUS [Suspect]
     Indication: NON-SMALL CELL LUNG CANCER
     Dosage: 10MG, 1X DAILY, ORAL
     Route: 048
     Dates: start: 20120223

REACTIONS (3)
  - NON-SMALL CELL LUNG CANCER [None]
  - PLEURITIC PAIN [None]
  - NEOPLASM PROGRESSION [None]
